FAERS Safety Report 25257788 (Version 1)
Quarter: 2025Q2

REPORT INFORMATION
  Report Type: Spontaneous
  Country: IT (occurrence: IT)
  Receive Date: 20250430
  Receipt Date: 20250430
  Transmission Date: 20250717
  Serious: Yes (Other)
  Sender: RANBAXY
  Company Number: IT-SUN PHARMACEUTICAL INDUSTRIES LTD-2025R1-505829

PATIENT
  Age: 53 Year
  Sex: Female

DRUGS (2)
  1. CAPECITABINE [Suspect]
     Active Substance: CAPECITABINE
     Indication: Breast cancer metastatic
     Route: 065
     Dates: start: 200901
  2. LAPATINIB [Suspect]
     Active Substance: LAPATINIB
     Indication: Breast cancer metastatic
     Route: 065
     Dates: start: 200901

REACTIONS (2)
  - Palmar-plantar erythrodysaesthesia syndrome [Recovered/Resolved]
  - Asthenia [Recovered/Resolved]
